FAERS Safety Report 18962832 (Version 1)
Quarter: 2021Q1

REPORT INFORMATION
  Report Type: Spontaneous
  Country: US (occurrence: US)
  Receive Date: 20210302
  Receipt Date: 20210302
  Transmission Date: 20210420
  Serious: No
  Sender: FDA-Public Use
  Company Number: None

PATIENT
  Age: 82 Year
  Sex: Female
  Weight: 94.2 kg

DRUGS (2)
  1. MEMBRANEBLUE [Suspect]
     Active Substance: TRYPAN BLUE
     Route: 047
     Dates: start: 20210203
  2. TISSUEBLUE [Suspect]
     Active Substance: BRILLIANT BLUE G
     Route: 047
     Dates: start: 20210203

REACTIONS (1)
  - Macular hole [None]

NARRATIVE: CASE EVENT DATE: 20210223
